FAERS Safety Report 4316263-7 (Version None)
Quarter: 2004Q1

REPORT INFORMATION
  Report Type: 
  Country: None (occurrence: None)
  Receive Date: 20040312
  Receipt Date: 20030926
  Transmission Date: 20041129
  Serious: Yes (Other)
  Sender: FDA-Public Use
  Company Number: US-BRISTOL-MYERS SQUIBB COMPANY-12396651

PATIENT
  Age: 43 Year
  Sex: Female

DRUGS (4)
  1. BUSPAR [Suspect]
     Indication: ANXIETY
     Dosage: STARTED ON 30MG DAILY, THEN CHANGED TO 20MG IN THE MORNING + EVENING FOR ^PAST SEVERAL WEEKS^.
     Route: 048
     Dates: start: 20030808, end: 20030911
  2. SYNTHROID [Concomitant]
     Indication: THYROID DISORDER
     Dosage: 0.112MCG
  3. TAPAZOLE [Concomitant]
  4. MIRCETTE [Concomitant]

REACTIONS (2)
  - CONVULSION [None]
  - HYPOGLYCAEMIA [None]
